FAERS Safety Report 7497477-4 (Version None)
Quarter: 2011Q2

REPORT INFORMATION
  Report Type: 
  Country: None (occurrence: None)
  Receive Date: 20110523
  Receipt Date: 20110510
  Transmission Date: 20111010
  Serious: Yes (Hospitalization, Other)
  Sender: FDA-Public Use
  Company Number: US-ELI_LILLY_AND_COMPANY-US201104000450

PATIENT
  Sex: Male

DRUGS (1)
  1. FORTEO [Suspect]
     Indication: BONE DISORDER
     Dosage: 20 UG, QD
     Route: 065
     Dates: end: 20110326

REACTIONS (3)
  - GENERAL PHYSICAL HEALTH DETERIORATION [None]
  - BRAIN NEOPLASM [None]
  - METASTATIC NEOPLASM [None]
